FAERS Safety Report 4690425-1 (Version None)
Quarter: 2005Q2

REPORT INFORMATION
  Report Type: 
  Country: None (occurrence: None)
  Receive Date: 20050615
  Receipt Date: 20050531
  Transmission Date: 20051028
  Serious: Yes (Other)
  Sender: FDA-Public Use
  Company Number: CA-JNJFOC-20050603096

PATIENT
  Sex: Female
  Weight: 10 kg

DRUGS (2)
  1. CONCENTRATED MOTRIN INFANTS' [Suspect]
     Route: 049
  2. CONCENTRATED MOTRIN INFANTS' [Suspect]
     Indication: DRUG USE FOR UNKNOWN INDICATION
     Route: 049

REACTIONS (3)
  - ABDOMINAL PAIN [None]
  - DEHYDRATION [None]
  - VOMITING [None]
